FAERS Safety Report 25481607 (Version 3)
Quarter: 2025Q3

REPORT INFORMATION
  Report Type: Spontaneous
  Country: US (occurrence: US)
  Receive Date: 20250626
  Receipt Date: 20250912
  Transmission Date: 20251021
  Serious: No
  Sender: BIOGEN
  Company Number: US-BIOGEN-2025BI01310112

PATIENT
  Age: 43 Year
  Sex: Male

DRUGS (2)
  1. SKYCLARYS [Suspect]
     Active Substance: OMAVELOXOLONE
     Indication: Friedreich^s ataxia
     Route: 050
     Dates: start: 20241224, end: 20250404
  2. SKYCLARYS [Suspect]
     Active Substance: OMAVELOXOLONE
     Route: 050
     Dates: start: 202412, end: 202503

REACTIONS (10)
  - Hypertension [Recovered/Resolved]
  - Weight increased [Recovered/Resolved]
  - Decreased activity [Unknown]
  - Hypersomnia [Recovered/Resolved]
  - Photopsia [Unknown]
  - Hyperhidrosis [Unknown]
  - Blood cholesterol increased [Recovered/Resolved]
  - Fatigue [Recovered/Resolved]
  - Hepatic enzyme increased [Not Recovered/Not Resolved]
  - Headache [Recovered/Resolved]

NARRATIVE: CASE EVENT DATE: 20241201
